FAERS Safety Report 19735119 (Version 1)
Quarter: 2021Q3

REPORT INFORMATION
  Report Type: Spontaneous
  Country: CN (occurrence: CN)
  Receive Date: 20210824
  Receipt Date: 20210824
  Transmission Date: 20211014
  Serious: Yes (Life-Threatening, Other)
  Sender: FDA-Public Use
  Company Number: CN-009507513-2108CHN005370

PATIENT
  Age: 46 Year
  Sex: Female
  Weight: 40 kg

DRUGS (2)
  1. SODIUM CHLORIDE. [Concomitant]
     Active Substance: SODIUM CHLORIDE
     Indication: MEDICATION DILUTION
     Dosage: 50 MILLILITER, TID, 25 ML/H
     Route: 042
     Dates: start: 20210806, end: 20210810
  2. TIENAM [Suspect]
     Active Substance: CILASTATIN SODIUM\IMIPENEM
     Indication: POST PROCEDURAL COMPLICATION
     Dosage: 1000 MILLIGRAM, TID
     Route: 042
     Dates: start: 20210806, end: 20210810

REACTIONS (1)
  - Seizure [Recovering/Resolving]

NARRATIVE: CASE EVENT DATE: 20210809
